FAERS Safety Report 6840740-8 (Version None)
Quarter: 2010Q3

REPORT INFORMATION
  Report Type: 
  Country: None (occurrence: None)
  Receive Date: 20100714
  Receipt Date: 20100702
  Transmission Date: 20110219
  Serious: Yes (Other)
  Sender: FDA-Public Use
  Company Number: FR-PFIZER INC-2010083743

PATIENT
  Age: 52 Year
  Sex: Female

DRUGS (13)
  1. RELPAX [Suspect]
     Indication: MIGRAINE
     Dosage: 40 MG, 1X/DAY
     Route: 048
     Dates: end: 20100608
  2. RUPATADINE [Suspect]
     Indication: SKIN REACTION
     Dosage: 10 MG, 1X/DAY
     Route: 048
     Dates: start: 20100412, end: 20100608
  3. PROTHIADEN [Suspect]
     Dosage: UNK
     Route: 048
     Dates: start: 20100412, end: 20100608
  4. POLARAMINE [Suspect]
     Dosage: 6 MG, 1X/DAY
     Route: 048
     Dates: start: 20100412, end: 20100608
  5. IMOVANE [Suspect]
     Indication: INSOMNIA
     Dosage: 7.5 MG, 1X/DAY
     Route: 048
     Dates: end: 20100608
  6. DELURSAN [Concomitant]
     Dosage: 250 MG
  7. PREVISCAN [Concomitant]
     Dosage: 20 MG PER DAY
  8. INIPOMP [Concomitant]
     Dosage: 40 MG
  9. BONIVA [Concomitant]
     Dosage: 150 MG
  10. CACIT D3 [Concomitant]
  11. SPASFON-LYOC [Concomitant]
     Dosage: 80 MG
  12. LEXOMIL [Concomitant]
     Dosage: 6 MG
  13. AVLOCARDYL [Concomitant]
     Dosage: 160 MG

REACTIONS (1)
  - JAUNDICE [None]
